FAERS Safety Report 4598501-9 (Version None)
Quarter: 2005Q2

REPORT INFORMATION
  Report Type: 
  Country: None (occurrence: None)
  Receive Date: 20050204
  Receipt Date: 20040130
  Transmission Date: 20051028
  Serious: Yes (Hospitalization, Other)
  Sender: FDA-Public Use
  Company Number: PHEH2004US01532

PATIENT
  Age: 23 Year
  Sex: Male

DRUGS (1)
  1. CLOZARIL [Suspect]
     Indication: AFFECTIVE DISORDER
     Dosage: ORAL
     Route: 048
     Dates: end: 20000101

REACTIONS (2)
  - AGRANULOCYTOSIS [None]
  - CELLULITIS [None]
